FAERS Safety Report 7347750-5 (Version None)
Quarter: 2011Q1

REPORT INFORMATION
  Report Type: 
  Country: None (occurrence: None)
  Receive Date: 20110311
  Receipt Date: 20110307
  Transmission Date: 20110831
  Serious: Yes (Disabling)
  Sender: FDA-Public Use
  Company Number: IT-NOVEN-11IT001938

PATIENT
  Age: 46 Year
  Sex: Male

DRUGS (5)
  1. LITHIUM CARBONATE [Suspect]
     Indication: PRODUCT USED FOR UNKNOWN INDICATION
     Dosage: 150 MG, QD X ONE WEEK
  2. TRIHEXYPHENIDYL [Concomitant]
     Indication: SALIVARY HYPERSECRETION
     Dosage: 4 MG, QD
  3. RILUZOLE [Concomitant]
     Indication: PRODUCT USED FOR UNKNOWN INDICATION
     Dosage: 100 MG, QD
  4. LITHIUM CARBONATE [Suspect]
     Dosage: 300 MG, QD
  5. VITAMIN E                          /00110501/ [Concomitant]
     Indication: PRODUCT USED FOR UNKNOWN INDICATION
     Dosage: 900 MG, QD

REACTIONS (3)
  - PARKINSONISM [None]
  - OFF LABEL USE [None]
  - NEUROTOXICITY [None]
